FAERS Safety Report 24982490 (Version 1)
Quarter: 2025Q1

REPORT INFORMATION
  Report Type: Spontaneous
  Country: US (occurrence: US)
  Receive Date: 20250218
  Receipt Date: 20250218
  Transmission Date: 20250408
  Serious: No
  Sender: PFIZER
  Company Number: US-PFIZER INC-202500034908

PATIENT
  Sex: Female

DRUGS (2)
  1. BUPIVACAINE HYDROCHLORIDE [Suspect]
     Active Substance: BUPIVACAINE HYDROCHLORIDE
     Indication: Spinal anaesthesia
     Dates: start: 20250106, end: 20250106
  2. BUPIVACAINE HYDROCHLORIDE [Suspect]
     Active Substance: BUPIVACAINE HYDROCHLORIDE
     Indication: Caesarean section

REACTIONS (1)
  - Therapeutic product effect incomplete [Recovered/Resolved]

NARRATIVE: CASE EVENT DATE: 20250106
